FAERS Safety Report 5905378-5 (Version None)
Quarter: 2008Q4

REPORT INFORMATION
  Report Type: 
  Country: None (occurrence: None)
  Receive Date: 20081001
  Receipt Date: 20080919
  Transmission Date: 20090506
  Serious: Yes (Other)
  Sender: FDA-Public Use
  Company Number: CN-PFIZER INC-2008079560

PATIENT
  Age: 64 Year
  Sex: Female

DRUGS (2)
  1. ZYVOX [Suspect]
     Indication: PYREXIA
     Route: 042
     Dates: start: 20080917, end: 20080917
  2. TEICOPLANIN [Concomitant]
     Route: 042
     Dates: start: 20080101, end: 20080916

REACTIONS (3)
  - CHEST DISCOMFORT [None]
  - DYSPNOEA [None]
  - RALES [None]
